FAERS Safety Report 15720307 (Version 1)
Quarter: 2018Q4

REPORT INFORMATION
  Report Type: Spontaneous
  Country: US (occurrence: US)
  Receive Date: 20181213
  Receipt Date: 20181213
  Transmission Date: 20190205
  Serious: No
  Sender: FDA-Public Use
  Company Number: US-PERRIGO-18US000712

PATIENT
  Age: 59 Year
  Sex: Female
  Weight: 48.73 kg

DRUGS (6)
  1. MUPIROCIN. [Suspect]
     Active Substance: MUPIROCIN
     Indication: IMPETIGO
     Dosage: SMALL AMOUNT, TID
     Route: 061
     Dates: start: 20180118, end: 20180123
  2. MUPIROCIN. [Suspect]
     Active Substance: MUPIROCIN
     Indication: SCAB
  3. MUPIROCIN. [Suspect]
     Active Substance: MUPIROCIN
     Indication: SKIN BURNING SENSATION
  4. MUPIROCIN. [Suspect]
     Active Substance: MUPIROCIN
     Indication: STAPHYLOCOCCAL INFECTION
  5. MUPIROCIN. [Suspect]
     Active Substance: MUPIROCIN
     Indication: WOUND SECRETION
  6. MUPIROCIN. [Suspect]
     Active Substance: MUPIROCIN
     Indication: HERPES SIMPLEX

REACTIONS (2)
  - Wound secretion [Unknown]
  - Application site pain [Unknown]

NARRATIVE: CASE EVENT DATE: 20180123
